FAERS Safety Report 17727390 (Version 1)
Quarter: 2020Q2

REPORT INFORMATION
  Report Type: Spontaneous
  Country: FR (occurrence: FR)
  Receive Date: 20200430
  Receipt Date: 20200430
  Transmission Date: 20200714
  Serious: Yes (Life-Threatening, Hospitalization)
  Sender: FDA-Public Use
  Company Number: FR-ACCORD-180064

PATIENT
  Age: 36 Year
  Sex: Female
  Weight: 70 kg

DRUGS (5)
  1. OXALIPLATIN ACCORD [Suspect]
     Active Substance: OXALIPLATIN
     Indication: RECTAL ADENOCARCINOMA
     Dosage: STRENGTH: 5 MG / ML
     Route: 042
     Dates: start: 201809, end: 20200213
  2. TOMUDEX [Concomitant]
     Active Substance: RALTITREXED
     Dosage: STRENGTH: 2 MG
     Route: 042
     Dates: start: 20200213
  3. IRINOTECAN [Concomitant]
     Active Substance: IRINOTECAN
     Route: 042
     Dates: start: 2018, end: 20200107
  4. AVASTIN [Concomitant]
     Active Substance: BEVACIZUMAB
     Route: 042
     Dates: start: 2018, end: 20200107
  5. FLUOROURACIL. [Concomitant]
     Active Substance: FLUOROURACIL
     Route: 042
     Dates: start: 2018, end: 20200107

REACTIONS (7)
  - Dyspnoea [Recovered/Resolved]
  - Infusion related hypersensitivity reaction [Recovered/Resolved]
  - Infusion related reaction [Recovered/Resolved]
  - Vomiting [Recovered/Resolved]
  - Nausea [Recovered/Resolved]
  - Rash [Recovered/Resolved]
  - Hypothermia [Recovered/Resolved]

NARRATIVE: CASE EVENT DATE: 20200107
